FAERS Safety Report 8886976 (Version 1)
Quarter: 2012Q4

REPORT INFORMATION
  Report Type: 
  Country: EG (occurrence: EG)
  Receive Date: 20121105
  Receipt Date: 20121105
  Transmission Date: 20130627
  Serious: Yes (Death, Other)
  Sender: FDA-Public Use
  Company Number: PHHY2012EG100599

PATIENT
  Sex: Female

DRUGS (1)
  1. ACLASTA [Suspect]
     Dosage: UNK
     Route: 042

REACTIONS (4)
  - Myocardial infarction [Fatal]
  - Respiratory failure [Fatal]
  - Chest pain [Unknown]
  - Dizziness [Unknown]
